FAERS Safety Report 5765072-0 (Version None)
Quarter: 2008Q2

REPORT INFORMATION
  Report Type: 
  Country: None (occurrence: None)
  Receive Date: 20080611
  Receipt Date: 20080602
  Transmission Date: 20081010
  Serious: Yes (Life-Threatening, Hospitalization)
  Sender: FDA-Public Use
  Company Number: JP-BRISTOL-MYERS SQUIBB COMPANY-14173942

PATIENT
  Age: 50 Year
  Sex: Male

DRUGS (7)
  1. IFOMIDE [Suspect]
     Indication: LYMPHOMA
     Route: 041
     Dates: start: 20080414, end: 20080416
  2. CARBOPLATIN [Concomitant]
     Indication: LYMPHOMA
     Dates: start: 20080414, end: 20080416
  3. LASTET [Concomitant]
     Indication: LYMPHOMA
     Dates: start: 20080414, end: 20080414
  4. UROMITEXAN [Concomitant]
     Indication: LYMPHOMA
     Dates: start: 20080414, end: 20080416
  5. DIFLUCAN [Concomitant]
     Dates: start: 20080327
  6. LEVOFLOXACIN [Concomitant]
     Dates: start: 20080327
  7. FAMOTIDINE [Concomitant]
     Dates: start: 20080318

REACTIONS (2)
  - ALTERED STATE OF CONSCIOUSNESS [None]
  - RENAL IMPAIRMENT [None]
